FAERS Safety Report 7649042-3 (Version None)
Quarter: 2011Q3

REPORT INFORMATION
  Report Type: 
  Country: None (occurrence: None)
  Receive Date: 20110726
  Receipt Date: 20110713
  Transmission Date: 20111222
  Serious: Yes (Hospitalization, Other)
  Sender: FDA-Public Use
  Company Number: EU-2011-10035

PATIENT
  Age: 93 Year
  Sex: Female

DRUGS (9)
  1. ASPIRIN [Concomitant]
  2. ATORVASTATIN [Concomitant]
  3. SAMSCA [Suspect]
     Indication: HYPONATRAEMIA
     Dosage: 15 MG MILLIGRAM(S), QD, ORAL
     Route: 048
     Dates: start: 20100804, end: 20100811
  4. SAMSCA [Suspect]
     Indication: INAPPROPRIATE ANTIDIURETIC HORMONE SECRETION
     Dosage: 15 MG MILLIGRAM(S), QD, ORAL
     Route: 048
     Dates: start: 20100804, end: 20100811
  5. SAMSCA [Suspect]
     Indication: HYPONATRAEMIA
     Dosage: 15 MG MILLIGRAM(S), QD, ORAL
     Route: 048
     Dates: start: 20100818, end: 20100819
  6. SAMSCA [Suspect]
     Indication: INAPPROPRIATE ANTIDIURETIC HORMONE SECRETION
     Dosage: 15 MG MILLIGRAM(S), QD, ORAL
     Route: 048
     Dates: start: 20100818, end: 20100819
  7. ISOSORBIDE MONONITRATE [Concomitant]
  8. GLICLAZIDE (GLIZLAZIDE) [Concomitant]
  9. ATENOLOL [Concomitant]

REACTIONS (2)
  - MYOCLONUS [None]
  - LOWER RESPIRATORY TRACT INFECTION [None]
